FAERS Safety Report 5011803-7 (Version None)
Quarter: 2006Q2

REPORT INFORMATION
  Report Type: 
  Country: None (occurrence: None)
  Receive Date: 20060524
  Receipt Date: 20060524
  Transmission Date: 20061013
  Serious: No
  Sender: FDA-Public Use
  Company Number: None

PATIENT
  Age: 89 Year
  Sex: Female

DRUGS (1)
  1. ENALAPRIL 20 MG TABLET [Suspect]
     Indication: BLOOD PRESSURE
     Dosage: 1 TABLET ORALLY ONCE DAILY
     Route: 048

REACTIONS (2)
  - BURNING SENSATION [None]
  - PHARMACEUTICAL PRODUCT COMPLAINT [None]
